FAERS Safety Report 8158527-5 (Version None)
Quarter: 2012Q1

REPORT INFORMATION
  Report Type: 
  Country: None (occurrence: None)
  Receive Date: 20120223
  Receipt Date: 20120215
  Transmission Date: 20120608
  Serious: No
  Sender: FDA-Public Use
  Company Number: US-PFIZER INC-K201100415

PATIENT
  Sex: Male

DRUGS (2)
  1. MORPHINE SULFATE [Suspect]
     Indication: BACK PAIN
     Dosage: UNK
  2. MORPHINE SULFATE [Suspect]
     Indication: ABDOMINAL PAIN UPPER

REACTIONS (1)
  - CONSTIPATION [None]
